FAERS Safety Report 6608093-8 (Version None)
Quarter: 2010Q1

REPORT INFORMATION
  Report Type: 
  Country: None (occurrence: None)
  Receive Date: 20100301
  Receipt Date: 20100222
  Transmission Date: 20100710
  Serious: Yes (Death)
  Sender: FDA-Public Use
  Company Number: CHPA2010US03825

PATIENT
  Age: 46 Year
  Sex: Male

DRUGS (3)
  1. ACETYLSALICYLIC ACID SRT [Suspect]
     Dosage: UNK, UNK
     Route: 048
  2. DEXTROMETHORPHAN HYDROBROMIDE, ACETAMINOPHEN (PARACETAMOL) (NCH) [Suspect]
     Dosage: UNK, UNK
     Route: 048
  3. ACETAMINOPHEN [Suspect]
     Route: 048

REACTIONS (1)
  - COMPLETED SUICIDE [None]
